FAERS Safety Report 13690808 (Version 4)
Quarter: 2017Q4

REPORT INFORMATION
  Report Type: Spontaneous
  Country: US (occurrence: US)
  Receive Date: 20170626
  Receipt Date: 20171116
  Transmission Date: 20180320
  Serious: Yes (Other)
  Sender: FDA-Public Use
  Company Number: US-CLOVIS ONCOLOGY-CLO-2017-000284

PATIENT
  Age: 64 Year
  Sex: Female

DRUGS (5)
  1. RUBRACA [Suspect]
     Active Substance: RUCAPARIB CAMSYLATE
     Dosage: 450 MG, BID
     Route: 048
     Dates: start: 20170427
  2. RUBRACA [Suspect]
     Active Substance: RUCAPARIB CAMSYLATE
     Indication: OVARIAN CANCER
     Dosage: 600 MG, BID
     Route: 048
     Dates: start: 20170321, end: 20170427
  3. RUBRACA [Suspect]
     Active Substance: RUCAPARIB CAMSYLATE
     Dosage: 500 MG, BID
     Route: 048
     Dates: start: 20170502, end: 201706
  4. RUBRACA [Suspect]
     Active Substance: RUCAPARIB CAMSYLATE
     Dosage: 500 MG, BID
     Route: 048
     Dates: start: 20170718, end: 20170915
  5. RUBRACA [Suspect]
     Active Substance: RUCAPARIB CAMSYLATE
     Dosage: 500 MG (300MG W/200MG), BID
     Route: 048
     Dates: start: 20170317, end: 20171004

REACTIONS (15)
  - Fatigue [Not Recovered/Not Resolved]
  - Therapy cessation [Unknown]
  - Myalgia [Not Recovered/Not Resolved]
  - Alanine aminotransferase increased [Unknown]
  - Intentional underdose [Unknown]
  - Neuropathy peripheral [Unknown]
  - Abdominal pain upper [Unknown]
  - Wrong technique in product usage process [Unknown]
  - Neoplasm malignant [Unknown]
  - Nasopharyngitis [Unknown]
  - Abdominal pain [Recovered/Resolved]
  - Solar dermatitis [Unknown]
  - Constipation [Unknown]
  - Drug dose omission [Unknown]
  - Drug ineffective [Unknown]

NARRATIVE: CASE EVENT DATE: 2017
